FAERS Safety Report 10363340 (Version 2)
Quarter: 2014Q4

REPORT INFORMATION
  Report Type: Report from Study
  Country: US (occurrence: US)
  Receive Date: 20140805
  Receipt Date: 20141115
  Transmission Date: 20150528
  Serious: Yes (Hospitalization)
  Sender: FDA-Public Use
  Company Number: PHEH2014US015523

PATIENT
  Age: 42 Year
  Sex: Male
  Weight: 79.37 kg

DRUGS (1)
  1. GILENYA [Suspect]
     Active Substance: FINGOLIMOD HYDROCHLORIDE
     Indication: MULTIPLE SCLEROSIS
     Dosage: 0.5 MG, QD
     Route: 048
     Dates: start: 20101217

REACTIONS (6)
  - Staphylococcal infection [Unknown]
  - Sinus disorder [Unknown]
  - Epistaxis [Unknown]
  - Pyrexia [Unknown]
  - Condition aggravated [Unknown]
  - Chills [Unknown]

NARRATIVE: CASE EVENT DATE: 201402
